FAERS Safety Report 4752238-1 (Version None)
Quarter: 2005Q3

REPORT INFORMATION
  Report Type: 
  Country: None (occurrence: None)
  Receive Date: 20050825
  Receipt Date: 20050505
  Transmission Date: 20060218
  Serious: Yes (Other)
  Sender: FDA-Public Use
  Company Number: US-GLAXOSMITHKLINE-A0557299A

PATIENT
  Age: 81 Year
  Sex: Female
  Weight: 57.7 kg

DRUGS (7)
  1. LOTRONEX [Suspect]
     Indication: IRRITABLE BOWEL SYNDROME
     Dosage: 2MG PER DAY
     Route: 048
  2. PREMARIN [Concomitant]
     Dosage: .625MG ALTERNATE DAYS
  3. SYNTHROID [Concomitant]
  4. TENORMIN [Concomitant]
  5. BENICAR [Concomitant]
  6. LIBRAX [Concomitant]
  7. NORVASC [Concomitant]

REACTIONS (1)
  - SYSTOLIC HYPERTENSION [None]
